FAERS Safety Report 7259923-0 (Version None)
Quarter: 2011Q1

REPORT INFORMATION
  Report Type: 
  Country: None (occurrence: None)
  Receive Date: 20110130
  Receipt Date: 20100913
  Transmission Date: 20110831
  Serious: No
  Sender: FDA-Public Use
  Company Number: US-ABBOTT-10P-163-0671457-00

PATIENT
  Sex: Male
  Weight: 81.266 kg

DRUGS (3)
  1. HUMIRA [Suspect]
     Indication: CROHN'S DISEASE
     Dates: start: 20100826, end: 20100826
  2. IMURAN [Concomitant]
     Indication: PRODUCT USED FOR UNKNOWN INDICATION
  3. ATENOLOL [Concomitant]
     Indication: HYPERTENSION

REACTIONS (6)
  - FATIGUE [None]
  - BACK PAIN [None]
  - PAIN [None]
  - WEIGHT DECREASED [None]
  - PYREXIA [None]
  - ARTHRALGIA [None]
